FAERS Safety Report 6377598-X (Version None)
Quarter: 2009Q3

REPORT INFORMATION
  Report Type: 
  Country: None (occurrence: None)
  Receive Date: 20090923
  Receipt Date: 20090923
  Transmission Date: 20100115
  Serious: Yes (Hospitalization)
  Sender: FDA-Public Use
  Company Number: None

PATIENT
  Age: 70 Year
  Sex: Female

DRUGS (8)
  1. VANCOMYCIN [Suspect]
     Indication: WOUND INFECTION STAPHYLOCOCCAL
     Dosage: 1 GM IV Q 48?
     Dates: start: 20080827, end: 20080902
  2. AMIODERONE [Concomitant]
  3. GLIMEPIRIDE [Concomitant]
  4. LEVOFLOX [Concomitant]
  5. ASPIRIN [Concomitant]
  6. FERROUS SULFATE TAB [Concomitant]
  7. ATORVASTATIN [Concomitant]
  8. ENALAPRIL MALEATE [Concomitant]

REACTIONS (1)
  - RASH ERYTHEMATOUS [None]
